FAERS Safety Report 12949142 (Version 1)
Quarter: 2016Q4

REPORT INFORMATION
  Report Type: Spontaneous
  Country: US (occurrence: US)
  Receive Date: 20161116
  Receipt Date: 20161116
  Transmission Date: 20170207
  Serious: No
  Sender: FDA-Public Use
  Company Number: None

PATIENT
  Age: 66 Year
  Sex: Female

DRUGS (1)
  1. HARVONI [Suspect]
     Active Substance: LEDIPASVIR\SOFOSBUVIR
     Indication: CHRONIC HEPATITIS C

REACTIONS (6)
  - Myalgia [None]
  - Headache [None]
  - Chills [None]
  - Nausea [None]
  - Pain in extremity [None]
  - Condition aggravated [None]

NARRATIVE: CASE EVENT DATE: 20161116
